FAERS Safety Report 21491789 (Version 3)
Quarter: 2022Q4

REPORT INFORMATION
  Report Type: Spontaneous
  Country: US (occurrence: US)
  Receive Date: 20221021
  Receipt Date: 20221104
  Transmission Date: 20230113
  Serious: Yes (Life-Threatening, Hospitalization, Other)
  Sender: FDA-Public Use
  Company Number: US-PFIZER INC-PV202200084576

PATIENT
  Age: 14 Year
  Sex: Female
  Weight: 55 kg

DRUGS (1)
  1. BENZONATATE [Suspect]
     Active Substance: BENZONATATE
     Dosage: 14 DF (14 CAPSULES OF 200 MG BENZONATATE, 50.9 MG/KG)
     Route: 048

REACTIONS (3)
  - Overdose [Unknown]
  - Torsade de pointes [Unknown]
  - Cardiac arrest [Unknown]
